FAERS Safety Report 9175121 (Version 1)
Quarter: 2013Q1

REPORT INFORMATION
  Report Type: Spontaneous
  Country: PL (occurrence: None)
  Receive Date: 20130315
  Receipt Date: 20130315
  Transmission Date: 20140127
  Serious: Yes (Other)
  Sender: FDA-Public Use
  Company Number: 2013-04234

PATIENT
  Age: 55 Year
  Sex: Female

DRUGS (12)
  1. GABAPENTIN (UNKNOWN) (GABAPENTIN) [Suspect]
     Indication: SOFT TISSUE DISORDER
     Route: 048
     Dates: start: 20121210
  2. SEREVENT (SALMETEROL XINAFOATE) [Concomitant]
  3. PULMICORT (BUDESONIDE) [Concomitant]
  4. FLONIDAN (LORATADINE) [Concomitant]
  5. STAVERAN (VERAPAMIL HYDROCHLORIDE) [Concomitant]
  6. CAPTOPRIL (CAPTOPRIL) [Concomitant]
  7. KALIPOZ (POTASSIUM CHLORIDE) [Concomitant]
  8. FUROSEMIDE (FUROSEMIDE) [Concomitant]
  9. RUTINOSCORBIN (ASCORBIC ACID, RUTOSIDE) [Concomitant]
  10. NITRAZEPAM (NITRAZEPAM) [Concomitant]
  11. HYDROXYZINE (HYDROXYZINE) [Concomitant]
  12. OMEPRAZOLE (OMEPRAZOLE) [Concomitant]

REACTIONS (8)
  - Blood pressure increased [None]
  - Heart rate increased [None]
  - Dyspnoea [None]
  - Dizziness [None]
  - Balance disorder [None]
  - Nausea [None]
  - Retching [None]
  - Alopecia [None]
